FAERS Safety Report 12803249 (Version 1)
Quarter: 2016Q4

REPORT INFORMATION
  Report Type: Spontaneous
  Country: US (occurrence: US)
  Receive Date: 20161003
  Receipt Date: 20161003
  Transmission Date: 20170207
  Serious: No
  Sender: FDA-Public Use
  Company Number: US-JNJFOC-20160712829

PATIENT
  Age: 6 Decade
  Sex: Female

DRUGS (4)
  1. NSAIDS [Concomitant]
     Active Substance: UNSPECIFIED INGREDIENT
     Route: 065
  2. LASIX [Concomitant]
     Active Substance: FUROSEMIDE
     Route: 065
  3. ACE INHIBITORS [Concomitant]
     Active Substance: UNSPECIFIED INGREDIENT
     Route: 065
  4. INVOKAMET [Suspect]
     Active Substance: CANAGLIFLOZIN\METFORMIN HYDROCHLORIDE
     Indication: TYPE 2 DIABETES MELLITUS
     Dosage: 50/500 MG
     Route: 048

REACTIONS (1)
  - Blood creatinine increased [Unknown]
